FAERS Safety Report 9672058 (Version 1)
Quarter: 2013Q4

REPORT INFORMATION
  Report Type: Spontaneous
  Country: US (occurrence: None)
  Receive Date: 20131105
  Receipt Date: 20131105
  Transmission Date: 20140711
  Serious: Yes (Other)
  Sender: FDA-Public Use
  Company Number: None

PATIENT
  Age: 34 Year
  Sex: Female
  Weight: 66.23 kg

DRUGS (6)
  1. METAXALONE [Suspect]
     Indication: SPINAL DISORDER
     Dosage: 800 MG  1-2 PILLS  DAILY OR EVERY OTHER DAY  BY MOUTH
     Route: 048
     Dates: start: 20130810, end: 20131030
  2. METAXALONE [Suspect]
     Indication: MUSCULAR WEAKNESS
     Dosage: 800 MG  1-2 PILLS  DAILY OR EVERY OTHER DAY  BY MOUTH
     Route: 048
     Dates: start: 20130810, end: 20131030
  3. IBUPROFIEN [Concomitant]
  4. MULTIVITAMIN [Concomitant]
  5. MULTIMINERALS [Concomitant]
  6. FLAX SEEDS [Concomitant]

REACTIONS (16)
  - Obsessive-compulsive disorder [None]
  - Major depression [None]
  - Suicidal ideation [None]
  - Withdrawal syndrome [None]
  - Muscle spasms [None]
  - Fatigue [None]
  - Activities of daily living impaired [None]
  - Energy increased [None]
  - Initial insomnia [None]
  - Mood swings [None]
  - Asthenia [None]
  - Tension [None]
  - Somnolence [None]
  - Feeling abnormal [None]
  - Paranoia [None]
  - Intentional drug misuse [None]
